FAERS Safety Report 12104570 (Version 1)
Quarter: 2016Q1

REPORT INFORMATION
  Report Type: Spontaneous
  Country: DE (occurrence: DE)
  Receive Date: 20160223
  Receipt Date: 20160223
  Transmission Date: 20160526
  Serious: Yes (Other)
  Sender: FDA-Public Use
  Company Number: DE-PFIZER INC-2016110100

PATIENT
  Age: 29 Year
  Sex: Female
  Weight: 62 kg

DRUGS (3)
  1. DIAZEPAM. [Concomitant]
     Active Substance: DIAZEPAM
     Indication: DEPRESSION
     Dosage: UNK, 3X/DAY
     Route: 048
  2. VENLAFAXINE HCL [Suspect]
     Active Substance: VENLAFAXINE HYDROCHLORIDE
     Indication: DEPRESSION
     Dosage: 75 MG, 1X/DAY, 1 TRIMESTER, 0. - 32.5. GESTATIONAL WEEK
     Route: 048
     Dates: start: 20141023, end: 20150609
  3. FEMIBION SCHWANGERSCHAFT 1 [Concomitant]
     Indication: PROPHYLAXIS OF NEURAL TUBE DEFECT
     Dosage: 0.8 MG, 1X/DAY 1 TRIMESTER 0. - 32.5. GESTATIONAL WEEK
     Route: 048
     Dates: start: 20141023, end: 20150609

REACTIONS (4)
  - Coagulopathy [Unknown]
  - Preterm premature rupture of membranes [Unknown]
  - Hypothyroidism [Unknown]
  - Infection [Unknown]
